FAERS Safety Report 8746924 (Version 2)
Quarter: 2012Q4

REPORT INFORMATION
  Report Type: 
  Country: BE (occurrence: BE)
  Receive Date: 20120827
  Receipt Date: 20120906
  Transmission Date: 20130627
  Serious: Yes (Other)
  Sender: FDA-Public Use
  Company Number: PHHY2012BE049505

PATIENT
  Sex: Male

DRUGS (14)
  1. ONBREZ [Suspect]
     Indication: CHRONIC OBSTRUCTIVE PULMONARY DISEASE
     Dosage: 150 ug, UNK
     Dates: start: 20120129, end: 20120217
  2. ONBREZ [Suspect]
     Dosage: 300 ug, UNK
     Dates: start: 20120218, end: 20120310
  3. ONBREZ [Suspect]
     Dosage: 150 ug, UNK
     Dates: start: 20120606
  4. ATACAND [Concomitant]
     Dosage: 16 mg, BID
  5. SINTROM [Concomitant]
  6. KREDEX [Concomitant]
  7. BURINEX [Concomitant]
  8. BETASERC [Concomitant]
     Dosage: 16 mg, BID
  9. SYMBICORT [Concomitant]
  10. DUOVENT [Concomitant]
  11. CARVEDILOL [Concomitant]
     Dosage: 12.5 mg, BID
  12. PIRACETAM [Concomitant]
     Dosage: 12 mg, BID
  13. PROFLOX /BEL/ [Concomitant]
     Dosage: 400 mg, UNK
     Dates: start: 20120207, end: 20120227
  14. AUGMENTIN [Concomitant]
     Dosage: 875 mg, BID
     Dates: start: 20120124, end: 20120206

REACTIONS (5)
  - Retinal disorder [Recovering/Resolving]
  - Blindness [Recovering/Resolving]
  - Vision blurred [Recovered/Resolved]
  - Visual impairment [Recovered/Resolved]
  - Drug ineffective [Unknown]
